FAERS Safety Report 9676107 (Version 1)
Quarter: 2013Q4

REPORT INFORMATION
  Report Type: Spontaneous
  Country: US (occurrence: US)
  Receive Date: 20131107
  Receipt Date: 20131107
  Transmission Date: 20140711
  Serious: Yes (Hospitalization, Other)
  Sender: FDA-Public Use
  Company Number: US-MALLINCKRODT-T201304781

PATIENT
  Age: 26 Year
  Sex: Female

DRUGS (1)
  1. HYDROCODONE/ACETAMINOPHEN [Suspect]
     Indication: PRODUCT USED FOR UNKNOWN INDICATION
     Route: 045

REACTIONS (8)
  - Drug abuse [Unknown]
  - Nasal septum perforation [Unknown]
  - Sinusitis [Unknown]
  - Odynophagia [Unknown]
  - Dysphagia [Unknown]
  - Speech disorder [Unknown]
  - Weight decreased [Unknown]
  - Euphoric mood [Unknown]
